FAERS Safety Report 4339299-9 (Version None)
Quarter: 2004Q2

REPORT INFORMATION
  Report Type: 
  Country: None (occurrence: None)
  Receive Date: 20040415
  Receipt Date: 20031021
  Transmission Date: 20050107
  Serious: Yes (Death, Life-Threatening, Other)
  Sender: FDA-Public Use
  Company Number: PHBS2003JP11718

PATIENT
  Age: 50 Year
  Sex: Male
  Weight: 68 kg

DRUGS (7)
  1. SIMULECT [Suspect]
     Indication: LUNG TRANSPLANT
     Dosage: 20 MG, ONCE/SINGLE
     Route: 042
     Dates: start: 20030930, end: 20030930
  2. SIMULECT [Suspect]
     Dosage: 20 MG, ONCE/SINGLE
     Route: 042
     Dates: start: 20031005, end: 20031005
  3. SANDIMMUNE [Suspect]
     Indication: LUNG TRANSPLANT
     Dosage: 60 - 210 MG / DAY
     Route: 042
     Dates: start: 20031001
  4. IMURAN [Suspect]
     Indication: LUNG TRANSPLANT
     Dosage: 100 MG / DAY
     Route: 042
     Dates: start: 20031001, end: 20031010
  5. SOLU-MEDROL [Suspect]
     Indication: LUNG TRANSPLANT
     Dosage: 1000 MG / DAY
     Route: 042
     Dates: start: 20031007, end: 20031009
  6. SOLU-MEDROL [Suspect]
     Dosage: 40 MG / DAY
     Route: 042
     Dates: start: 20031016
  7. SOLU-MEDROL [Suspect]
     Dosage: 60 MG / DAY
     Route: 042
     Dates: start: 20031001, end: 20031006

REACTIONS (7)
  - BRONCHITIS [None]
  - INFECTION [None]
  - LUNG DISORDER [None]
  - LUNG TRANSPLANT REJECTION [None]
  - NECROSIS OF BRONCHIOLI [None]
  - PLEURAL HAEMORRHAGE [None]
  - STAPHYLOCOCCAL INFECTION [None]
